FAERS Safety Report 14721304 (Version 1)
Quarter: 2018Q2

REPORT INFORMATION
  Report Type: Spontaneous
  Country: JP (occurrence: JP)
  Receive Date: 20180405
  Receipt Date: 20180405
  Transmission Date: 20180711
  Serious: Yes (Death, Hospitalization)
  Sender: FDA-Public Use
  Company Number: JP-SA-2018SA098737

PATIENT
  Sex: Male

DRUGS (3)
  1. LANTUS [Suspect]
     Active Substance: INSULIN GLARGINE
     Route: 058
  2. HUMALOG [Concomitant]
     Active Substance: INSULIN LISPRO
     Dosage: 20 UNITS IN THE MORNING, 16 UNITS AT NOON, 16 UNITS IN THE EVENING)
     Route: 058
  3. LANTUS [Suspect]
     Active Substance: INSULIN GLARGINE
     Dosage: 20 UNITS IN THE MORNING, 6 UNITS IN THE EVENING
     Route: 058

REACTIONS (4)
  - Hypoglycaemia [Unknown]
  - Product use issue [Unknown]
  - Liver disorder [Unknown]
  - Death [Fatal]
